FAERS Safety Report 10362904 (Version 1)
Quarter: 2014Q3

REPORT INFORMATION
  Report Type: Spontaneous
  Country: US (occurrence: None)
  Receive Date: 20140804
  Receipt Date: 20140804
  Transmission Date: 20150326
  Serious: Yes (Hospitalization)
  Sender: FDA-Public Use
  Company Number: None

PATIENT
  Age: 51 Year
  Sex: Female

DRUGS (9)
  1. SYNTHROID [Concomitant]
     Active Substance: LEVOTHYROXINE SODIUM
  2. EPINEPHRINE. [Concomitant]
     Active Substance: EPINEPHRINE
  3. GLEEVEC [Suspect]
     Active Substance: IMATINIB MESYLATE
     Indication: NEOPLASM MALIGNANT
     Route: 048
     Dates: start: 20100324
  4. LAMICTAL [Concomitant]
     Active Substance: LAMOTRIGINE
  5. OSCAL [Concomitant]
     Active Substance: CALCIUM CARBONATE
  6. GLEEVEC [Suspect]
     Active Substance: IMATINIB MESYLATE
     Indication: GASTROINTESTINAL NEOPLASM
     Route: 048
     Dates: start: 20100324
  7. VITAMIN D [Concomitant]
     Active Substance: CHOLECALCIFEROL
  8. LIDOCAINE. [Concomitant]
     Active Substance: LIDOCAINE
  9. DEPAKOTE [Concomitant]
     Active Substance: DIVALPROEX SODIUM

REACTIONS (1)
  - Neoplasm [None]

NARRATIVE: CASE EVENT DATE: 20140730
